FAERS Safety Report 18159611 (Version 1)
Quarter: 2020Q3

REPORT INFORMATION
  Report Type: Spontaneous
  Country: US (occurrence: US)
  Receive Date: 20200817
  Receipt Date: 20200817
  Transmission Date: 20201103
  Serious: Yes (Other)
  Sender: FDA-Public Use
  Company Number: US-PURDUE-USA-2020-0161403

PATIENT
  Sex: Male

DRUGS (2)
  1. HYDROCODONE BITARTRATE (SIMILAR TO NDA 206627) [Suspect]
     Active Substance: HYDROCODONE BITARTRATE
     Indication: PAIN
     Dosage: 7.5 MG, Q6H
     Route: 048
  2. OXYCONTIN [Suspect]
     Active Substance: OXYCODONE HYDROCHLORIDE
     Indication: PAIN
     Dosage: 80 MG, Q4H
     Route: 048

REACTIONS (7)
  - Tooth loss [Unknown]
  - Product prescribing issue [Unknown]
  - Osteoporosis [Unknown]
  - Feeling abnormal [Unknown]
  - Decreased appetite [Unknown]
  - Barrett^s oesophagus [Unknown]
  - Bedridden [Unknown]
